FAERS Safety Report 6709929-2 (Version None)
Quarter: 2010Q2

REPORT INFORMATION
  Report Type: 
  Country: None (occurrence: None)
  Receive Date: 20100504
  Receipt Date: 20100423
  Transmission Date: 20101027
  Serious: Yes (Hospitalization)
  Sender: FDA-Public Use
  Company Number: GB-TEVA-232727ISR

PATIENT
  Age: 50 Year
  Sex: Male

DRUGS (2)
  1. CARBAMAZEPINE [Suspect]
     Indication: EPILEPSY
     Route: 048
  2. LEVETIRACETAM [Suspect]
     Indication: EPILEPSY
     Route: 048

REACTIONS (3)
  - DYSPHAGIA [None]
  - GASTROINTESTINAL OBSTRUCTION [None]
  - NEOPLASM MALIGNANT [None]
